FAERS Safety Report 4580621-6 (Version None)
Quarter: 2005Q1

REPORT INFORMATION
  Report Type: 
  Country: None (occurrence: None)
  Receive Date: 20050214
  Receipt Date: 20040427
  Transmission Date: 20050727
  Serious: No
  Sender: FDA-Public Use
  Company Number: US-GLAXOSMITHKLINE-A0508659A

PATIENT

DRUGS (3)
  1. LAMICTAL [Suspect]
     Indication: BIPOLAR DISORDER
     Dosage: 100MG TWICE PER DAY
     Route: 048
     Dates: start: 20040201
  2. EFFEXOR [Concomitant]
  3. XANAX [Concomitant]

REACTIONS (3)
  - APTYALISM [None]
  - GINGIVAL EROSION [None]
  - TOOTH DEPOSIT [None]
